FAERS Safety Report 8901409 (Version 1)
Quarter: 2012Q4

REPORT INFORMATION
  Report Type: 
  Country: BE (occurrence: BE)
  Receive Date: 20121109
  Receipt Date: 20121109
  Transmission Date: 20130627
  Serious: Yes (Hospitalization)
  Sender: FDA-Public Use
  Company Number: BE-JNJFOC-20121103480

PATIENT
  Sex: Male

DRUGS (4)
  1. XARELTO [Suspect]
     Indication: THROMBOSIS PROPHYLAXIS
     Route: 048
     Dates: start: 20121004
  2. XARELTO [Suspect]
     Indication: KNEE ARTHROPLASTY
     Route: 048
     Dates: start: 20121004
  3. CLEXANE [Concomitant]
     Route: 065
  4. APROVEL [Concomitant]
     Indication: HYPERTENSION
     Route: 065

REACTIONS (1)
  - Transient ischaemic attack [Recovered/Resolved]
